FAERS Safety Report 21307719 (Version 3)
Quarter: 2022Q3

REPORT INFORMATION
  Report Type: Spontaneous
  Country: IN (occurrence: IN)
  Receive Date: 20220908
  Receipt Date: 20220914
  Transmission Date: 20221027
  Serious: Yes (Hospitalization, Other)
  Sender: FDA-Public Use
  Company Number: IN-PFIZER INC-2019158132

PATIENT
  Age: 54 Year
  Sex: Male

DRUGS (5)
  1. SUTENT [Suspect]
     Active Substance: SUNITINIB MALATE
     Indication: Metastatic renal cell carcinoma
     Dosage: 50 MG, CYCLIC (1X/DAY, 2 WEEKS ON AND 1 WEEK OFF)
     Route: 048
     Dates: start: 20190412
  2. SUTENT [Suspect]
     Active Substance: SUNITINIB MALATE
     Dosage: 62.5 MG, CYCLIC(1OD (2 WKS ON, 1 WK OFF) )
  3. SUTENT [Suspect]
     Active Substance: SUNITINIB MALATE
     Dosage: 50 MG
     Route: 048
  4. SUTENT [Suspect]
     Active Substance: SUNITINIB MALATE
     Dosage: UNK
     Dates: end: 202206
  5. SUTENT [Suspect]
     Active Substance: SUNITINIB MALATE
     Dosage: 50 MG
     Dates: start: 202209

REACTIONS (13)
  - Tumour excision [Unknown]
  - Adrenalectomy [Unknown]
  - Blood thyroid stimulating hormone decreased [Unknown]
  - Hypothyroidism [Unknown]
  - Diarrhoea [Unknown]
  - Neoplasm progression [Unknown]
  - Bladder dilatation [Unknown]
  - Hydrocele [Unknown]
  - Prostatomegaly [Unknown]
  - Abdominal distension [Unknown]
  - Hypertension [Unknown]
  - Haemoglobin decreased [Unknown]
  - Platelet count decreased [Unknown]

NARRATIVE: CASE EVENT DATE: 20220801
